FAERS Safety Report 7145019-5 (Version None)
Quarter: 2010Q4

REPORT INFORMATION
  Report Type: 
  Country: None (occurrence: None)
  Receive Date: 20101208
  Receipt Date: 20101202
  Transmission Date: 20110411
  Serious: Yes (Death)
  Sender: FDA-Public Use
  Company Number: US-US-EMD SERONO, INC.-7001707

PATIENT
  Sex: Female

DRUGS (2)
  1. REBIF [Suspect]
     Indication: MULTIPLE SCLEROSIS
     Route: 058
     Dates: start: 20050606, end: 20090101
  2. TYLENOL PM [Suspect]
     Indication: SLEEP DISORDER
     Dates: end: 20090101

REACTIONS (1)
  - HEPATIC FAILURE [None]
